FAERS Safety Report 13577155 (Version 3)
Quarter: 2020Q4

REPORT INFORMATION
  Report Type: Spontaneous
  Country: AU (occurrence: AU)
  Receive Date: 20170524
  Receipt Date: 20201028
  Transmission Date: 20210113
  Serious: Yes (Life-Threatening, Hospitalization, Other)
  Sender: FDA-Public Use
  Company Number: AU-ALKEM LABORATORIES LIMITED-AU-ALKEM-2017-00256

PATIENT
  Age: 15 Year
  Sex: Male
  Weight: 70 kg

DRUGS (11)
  1. AMLODIPINE BESYLATE. [Suspect]
     Active Substance: AMLODIPINE BESYLATE
     Indication: PRODUCT USED FOR UNKNOWN INDICATION
     Dosage: 290 MG (ONCE TOTAL)
     Route: 048
  2. RAMIPRIL. [Suspect]
     Active Substance: RAMIPRIL
     Indication: PRODUCT USED FOR UNKNOWN INDICATION
     Dosage: 100 MG (ONCE TOTAL)
     Route: 048
  3. QUETIAPINE FUMARATE. [Interacting]
     Active Substance: QUETIAPINE FUMARATE
     Indication: PRODUCT USED FOR UNKNOWN INDICATION
     Dosage: 13.5 G, ONCE TOTAL (IMMEDIATE AND EXTENDED RELEASE)
     Route: 048
  4. VENLAFAXINE [Interacting]
     Active Substance: VENLAFAXINE HYDROCHLORIDE
     Indication: PRODUCT USED FOR UNKNOWN INDICATION
     Dosage: 1.05 G, (ONCE TOTAL)
     Route: 048
  5. METHYLTHIONINIUM CHLORIDE [Interacting]
     Active Substance: METHYLENE BLUE
     Indication: PRODUCT USED FOR UNKNOWN INDICATION
     Dosage: 1.5 MG/KG (BOLUS)
     Route: 065
  6. METHYLTHIONINIUM CHLORIDE [Interacting]
     Active Substance: METHYLENE BLUE
     Dosage: 1.5 MG/KG, EVERY ONE HOUR
     Route: 065
  7. LITHIUM. [Suspect]
     Active Substance: LITHIUM
     Indication: PRODUCT USED FOR UNKNOWN INDICATION
     Dosage: UNK
     Route: 048
  8. PROMETHAZINE [Suspect]
     Active Substance: PROMETHAZINE HYDROCHLORIDE
     Indication: PRODUCT USED FOR UNKNOWN INDICATION
     Dosage: 500 MG (ONCE TOTAL)
     Route: 048
  9. DESVENLAFAXINE. [Interacting]
     Active Substance: DESVENLAFAXINE
     Indication: PRODUCT USED FOR UNKNOWN INDICATION
     Dosage: 5.6 G, ONCE TOTAL (EXTENDED RELEASE)
     Route: 048
  10. FLUOXETINE [Interacting]
     Active Substance: FLUOXETINE HYDROCHLORIDE
     Indication: PRODUCT USED FOR UNKNOWN INDICATION
     Dosage: 560 MG (ONCE TOTAL)
     Route: 048
  11. METHYLTHIONINIUM CHLORIDE [Interacting]
     Active Substance: METHYLENE BLUE
     Dosage: 0.75 MG/KG, EVERY ONE HOUR
     Route: 065

REACTIONS (8)
  - Drug interaction [Unknown]
  - Paralysis [Unknown]
  - Shock [Recovered/Resolved]
  - Serotonin syndrome [Recovered/Resolved]
  - Oliguria [Recovered/Resolved]
  - Blood creatinine increased [Recovered/Resolved]
  - Overdose [Unknown]
  - Toxicity to various agents [Unknown]
